FAERS Safety Report 5661856-8 (Version None)
Quarter: 2008Q1

REPORT INFORMATION
  Report Type: 
  Country: None (occurrence: None)
  Receive Date: 20080312
  Receipt Date: 20080228
  Transmission Date: 20080703
  Serious: Yes (Other)
  Sender: FDA-Public Use
  Company Number: CA-PURDUE-CAN_2008_0000496

PATIENT
  Age: 78 Year
  Sex: Female

DRUGS (8)
  1. OXYCONTIN [Suspect]
     Indication: DRUG USE FOR UNKNOWN INDICATION
     Dosage: 10 MG, BID
  2. SUPEUDOL [Suspect]
     Indication: DRUG USE FOR UNKNOWN INDICATION
     Dosage: 5 MG, Q4H
  3. ASPIRIN [Concomitant]
     Indication: DRUG USE FOR UNKNOWN INDICATION
  4. CALTRATE [Concomitant]
     Indication: DRUG USE FOR UNKNOWN INDICATION
  5. HYDROCHLOROTHIAZIDE [Concomitant]
     Indication: DRUG USE FOR UNKNOWN INDICATION
     Route: 048
  6. LOVASTATIN [Concomitant]
     Indication: DRUG USE FOR UNKNOWN INDICATION
     Route: 048
  7. TEGRETOL [Concomitant]
     Indication: DRUG USE FOR UNKNOWN INDICATION
  8. DESYREL [Concomitant]
     Indication: DRUG USE FOR UNKNOWN INDICATION
     Dosage: UNK, UNK
     Route: 048

REACTIONS (2)
  - HOT FLUSH [None]
  - HYPERHIDROSIS [None]
